FAERS Safety Report 15083434 (Version 1)
Quarter: 2018Q2

REPORT INFORMATION
  Report Type: Report from Study
  Country: None (occurrence: NO)
  Receive Date: 20180628
  Receipt Date: 20180628
  Transmission Date: 20180711
  Serious: Yes (Other)
  Sender: FDA-Public Use
  Company Number: NO-ABBVIE-18P-122-2318097-00

PATIENT
  Age: 63 Year
  Sex: Male
  Weight: 86.8 kg

DRUGS (13)
  1. APIXABAN [Concomitant]
     Active Substance: APIXABAN
     Indication: DEEP VEIN THROMBOSIS
     Route: 048
     Dates: start: 201710
  2. ZOMETA [Concomitant]
     Active Substance: ZOLEDRONIC ACID
     Indication: PLASMA CELL MYELOMA
     Route: 042
  3. TERRAMYCINE + POLYMYXINE B [Concomitant]
     Indication: PRODUCT USED FOR UNKNOWN INDICATION
     Route: 047
     Dates: start: 20180219
  4. VENETOCLAX. [Suspect]
     Active Substance: VENETOCLAX
     Route: 048
     Dates: end: 20180508
  5. CALCIGRAN FORTE [Concomitant]
     Active Substance: CALCIUM CARBONATE\CHOLECALCIFEROL
     Indication: PLASMA CELL MYELOMA
  6. BRONKYL [Concomitant]
     Indication: PRODUCTIVE COUGH
     Route: 048
     Dates: start: 20180205
  7. LOPERAMID [Concomitant]
     Active Substance: LOPERAMIDE
     Indication: DIARRHOEA
     Dates: start: 20180122
  8. ZOVIRAX [Concomitant]
     Active Substance: ACYCLOVIR
     Indication: ORAL HERPES
     Route: 061
     Dates: start: 20180308, end: 20180314
  9. COBIMETINIB. [Suspect]
     Active Substance: COBIMETINIB
     Indication: PLASMA CELL MYELOMA
     Dosage: DATE OF LAST DOSE PRIOR TO SAE ON 02-APR-2018
     Route: 048
     Dates: start: 20180122
  10. ATEZOLIZUMAB. [Suspect]
     Active Substance: ATEZOLIZUMAB
     Indication: PLASMA CELL MYELOMA
     Dosage: DATE OF MOST RECENT DOSE OF ATEZOLIZUMAB PRIOR TO SAE ONSET 19 MAR 2018
     Route: 042
     Dates: start: 20180122
  11. APIXABAN [Concomitant]
     Active Substance: APIXABAN
     Route: 048
     Dates: start: 20180319
  12. VENETOCLAX. [Suspect]
     Active Substance: VENETOCLAX
     Indication: PLASMA CELL MYELOMA
     Route: 048
     Dates: start: 20180122, end: 20180402
  13. ZOFRAN [Concomitant]
     Active Substance: ONDANSETRON HYDROCHLORIDE
     Indication: NAUSEA
     Route: 048
     Dates: start: 20180122

REACTIONS (2)
  - Neutropenia [Recovered/Resolved]
  - Neutropenia [Recovering/Resolving]

NARRATIVE: CASE EVENT DATE: 20180403
